FAERS Safety Report 18663434 (Version 3)
Quarter: 2021Q3

REPORT INFORMATION
  Report Type: Report from Study
  Country: ES (occurrence: ES)
  Receive Date: 20201224
  Receipt Date: 20210901
  Transmission Date: 20211014
  Serious: Yes (Other)
  Sender: FDA-Public Use
  Company Number: ES-SHIRE-ES201945987

PATIENT
  Age: 65 Year
  Sex: Male

DRUGS (14)
  1. FERINJECT [Concomitant]
     Active Substance: FERRIC CARBOXYMALTOSE
     Indication: ANAEMIA MACROCYTIC
     Dosage: 1 GRAM, MONTHLY
     Route: 042
     Dates: start: 20201211, end: 20210111
  2. BETAHISTINE HYDROCHLORIDE [Concomitant]
     Active Substance: BETAHISTINE HYDROCHLORIDE
     Indication: VERTIGO
     Dosage: 8 GRAM, TID
     Route: 048
     Dates: start: 20201212, end: 20201213
  3. VIRIREC [Concomitant]
     Indication: ERECTILE DYSFUNCTION
     Dosage: 3.00 MILLIGRAM, PRN
     Route: 061
     Dates: start: 20190717
  4. FERINJECT [Concomitant]
     Active Substance: FERRIC CARBOXYMALTOSE
     Indication: IRON DEFICIENCY
  5. TEDUGLUTIDE [Suspect]
     Active Substance: TEDUGLUTIDE
     Indication: SHORT-BOWEL SYNDROME
     Dosage: UNK
     Route: 065
     Dates: start: 20190425
  6. TEDUGLUTIDE [Suspect]
     Active Substance: TEDUGLUTIDE
     Dosage: 3.95 MILLIGRAM, QD
     Route: 065
     Dates: start: 20190425
  7. TEDUGLUTIDE [Suspect]
     Active Substance: TEDUGLUTIDE
     Dosage: 3.95 MILLIGRAM, QD
     Route: 065
     Dates: start: 20190425
  8. TEDUGLUTIDE [Suspect]
     Active Substance: TEDUGLUTIDE
     Dosage: 3.95 MILLIGRAM, QD
     Route: 065
     Dates: start: 20190425
  9. TEDUGLUTIDE [Suspect]
     Active Substance: TEDUGLUTIDE
     Indication: SHORT-BOWEL SYNDROME
     Dosage: UNK
     Route: 065
     Dates: start: 20190425
  10. BETAHISTINE HYDROCHLORIDE [Concomitant]
     Active Substance: BETAHISTINE HYDROCHLORIDE
     Indication: DIZZINESS
  11. TEDUGLUTIDE [Suspect]
     Active Substance: TEDUGLUTIDE
     Indication: SHORT-BOWEL SYNDROME
     Dosage: UNK
     Route: 065
     Dates: start: 20190425
  12. TEDUGLUTIDE [Suspect]
     Active Substance: TEDUGLUTIDE
     Indication: SHORT-BOWEL SYNDROME
     Dosage: UNK
     Route: 065
     Dates: start: 20190425
  13. TEDUGLUTIDE [Suspect]
     Active Substance: TEDUGLUTIDE
     Dosage: 3.95 MILLIGRAM, QD
     Route: 065
     Dates: start: 20190425
  14. METAMIZOLE MAGNESIUM [Concomitant]
     Active Substance: METAMIZOLE MAGNESIUM
     Indication: SCIATICA
     Dosage: 1 DOSAGE FORM, BID
     Route: 048
     Dates: start: 20200701, end: 20200809

REACTIONS (6)
  - Gastrointestinal stoma output increased [Recovered/Resolved]
  - Anaemia [Recovered/Resolved]
  - Stoma site haemorrhage [Recovered/Resolved]
  - Dizziness [Recovered/Resolved]
  - Vertigo [Recovered/Resolved]
  - Skin mass [Not Recovered/Not Resolved]

NARRATIVE: CASE EVENT DATE: 20190828
